FAERS Safety Report 23611434 (Version 5)
Quarter: 2024Q2

REPORT INFORMATION
  Report Type: Spontaneous
  Country: MX (occurrence: None)
  Receive Date: 20240308
  Receipt Date: 20240411
  Transmission Date: 20240716
  Serious: Yes (Other)
  Sender: FDA-Public Use
  Company Number: 2024A054135

PATIENT
  Age: 64 Year
  Sex: Female
  Weight: 72 kg

DRUGS (5)
  1. XIGDUO XR [Suspect]
     Active Substance: DAPAGLIFLOZIN PROPANEDIOL\METFORMIN HYDROCHLORIDE
     Indication: Diabetes mellitus
     Dosage: WITH ONE TABLET A DAY AT BREAKFAST
     Route: 048
     Dates: start: 202307, end: 202308
  2. XIGDUO XR [Suspect]
     Active Substance: DAPAGLIFLOZIN PROPANEDIOL\METFORMIN HYDROCHLORIDE
     Indication: Diabetes mellitus
     Dosage: ONE TABLET IN THE MORNING BEFORE BREAKFAST AND ONE TABLET AT NIGHT BEFORE GOING TO SLEEP
     Route: 048
     Dates: start: 202308
  3. LOSARTAN [Concomitant]
     Active Substance: LOSARTAN
     Indication: Hypertension
  4. LINAGLIPTIN [Concomitant]
     Active Substance: LINAGLIPTIN
  5. PHARMATON [Concomitant]
     Dosage: OCCASIONALLY

REACTIONS (12)
  - Blood glucose increased [Not Recovered/Not Resolved]
  - Blood glucose abnormal [Not Recovered/Not Resolved]
  - Fear [Not Recovered/Not Resolved]
  - Discomfort [Unknown]
  - Malaise [Not Recovered/Not Resolved]
  - Stress [Unknown]
  - Crying [Unknown]
  - Feeling abnormal [Unknown]
  - Product solubility abnormal [Unknown]
  - Intentional product misuse [Unknown]
  - Product quality issue [Unknown]
  - Drug ineffective [Unknown]

NARRATIVE: CASE EVENT DATE: 20230701
